FAERS Safety Report 9028804 (Version 2)
Quarter: 2013Q1

REPORT INFORMATION
  Report Type: Spontaneous
  Country: US (occurrence: US)
  Receive Date: 20130124
  Receipt Date: 20130225
  Transmission Date: 20140127
  Serious: Yes (Other)
  Sender: FDA-Public Use
  Company Number: US-BAYER-2013-006105

PATIENT
  Age: 42 Year
  Sex: Female

DRUGS (1)
  1. MIRENA [Suspect]
     Dosage: 20 MCG/24HR, CONT
     Route: 015
     Dates: start: 20111205, end: 20121016

REACTIONS (5)
  - Genital haemorrhage [None]
  - Ovarian cyst [None]
  - Uterine leiomyoma [None]
  - Dyspareunia [None]
  - Urinary incontinence [None]
